FAERS Safety Report 5532080-4 (Version None)
Quarter: 2007Q4

REPORT INFORMATION
  Report Type: 
  Country: None (occurrence: None)
  Receive Date: 20071203
  Receipt Date: 20071127
  Transmission Date: 20080405
  Serious: Yes (Hospitalization)
  Sender: FDA-Public Use
  Company Number: B0497615A

PATIENT
  Age: 72 Year
  Sex: Male

DRUGS (3)
  1. AUGMENTIN '125' [Suspect]
     Indication: BRONCHOPNEUMONIA
     Dosage: 2G PER DAY
     Route: 048
     Dates: start: 20071008, end: 20071010
  2. PARACETAMOL [Suspect]
     Dosage: 2G PER DAY
     Route: 048
     Dates: start: 20071006, end: 20071010
  3. ZITHROMAX [Suspect]
     Indication: BRONCHOPNEUMONIA
     Dosage: 500MG PER DAY
     Route: 065
     Dates: start: 20071010, end: 20071013

REACTIONS (4)
  - ANOREXIA [None]
  - ASTHENIA [None]
  - HEPATIC ENZYME INCREASED [None]
  - JAUNDICE [None]
